FAERS Safety Report 8348170-7 (Version None)
Quarter: 2012Q2

REPORT INFORMATION
  Report Type: 
  Country: None (occurrence: None)
  Receive Date: 20120509
  Receipt Date: 20100716
  Transmission Date: 20120825
  Serious: No
  Sender: FDA-Public Use
  Company Number: US-TEVA-2010003803

PATIENT
  Sex: Male
  Weight: 72.64 kg

DRUGS (2)
  1. NUVIGIL [Suspect]
     Indication: SEDATION
     Dosage: 150 MILLIGRAM;
     Route: 048
     Dates: start: 20090701
  2. MORPHINE [Concomitant]
     Indication: PAIN
     Dosage: 60 MILLIGRAM;
     Route: 048

REACTIONS (2)
  - DRUG INEFFECTIVE [None]
  - DRUG DIVERSION [None]
